FAERS Safety Report 18902592 (Version 2)
Quarter: 2021Q1

REPORT INFORMATION
  Report Type: Spontaneous
  Country: JP (occurrence: JP)
  Receive Date: 20210217
  Receipt Date: 20210304
  Transmission Date: 20210420
  Serious: Yes (Other)
  Sender: FDA-Public Use
  Company Number: NVSJ2021JP002410

PATIENT
  Age: 60 Year
  Sex: Male

DRUGS (1)
  1. VALSARTAN TAB [Suspect]
     Active Substance: VALSARTAN
     Indication: HYPERTENSION
     Dosage: 80 MG
     Route: 048

REACTIONS (2)
  - Ejection fraction decreased [Unknown]
  - Cardiac failure chronic [Unknown]
